FAERS Safety Report 24879084 (Version 1)
Quarter: 2025Q1

REPORT INFORMATION
  Report Type: Spontaneous
  Country: US (occurrence: US)
  Receive Date: 20250123
  Receipt Date: 20250123
  Transmission Date: 20250409
  Serious: No
  Sender: CATALYST PHARMA
  Company Number: US-CATALYST PHARMACEUTICALS, INC-US-CATA-24-00508

PATIENT
  Age: 64 Year
  Sex: Female
  Weight: 71.655 kg

DRUGS (27)
  1. FIRDAPSE [Suspect]
     Active Substance: AMIFAMPRIDINE PHOSPHATE
     Indication: Myasthenic syndrome
     Route: 048
     Dates: start: 20200707, end: 202007
  2. FIRDAPSE [Suspect]
     Active Substance: AMIFAMPRIDINE PHOSPHATE
     Dosage: 80 MG (2 TABLETS 4 TIMES A DAY)
     Route: 048
     Dates: start: 20200716, end: 2024
  3. FIRDAPSE [Suspect]
     Active Substance: AMIFAMPRIDINE PHOSPHATE
     Dosage: 2 TABLETS 5 TIMES A DAY
     Route: 048
     Dates: start: 20240607
  4. NEXIUM [Concomitant]
     Active Substance: ESOMEPRAZOLE MAGNESIUM
     Indication: Gastrooesophageal reflux disease
     Dosage: 40 MG DAILY
     Route: 065
  5. DYMISTA [Concomitant]
     Active Substance: AZELASTINE HYDROCHLORIDE\FLUTICASONE PROPIONATE
     Indication: Chronic sinusitis
     Dosage: 1 SPRAY TWICE A DAY
     Route: 065
  6. GUAIFENESIN [Concomitant]
     Active Substance: GUAIFENESIN
     Indication: Chronic sinusitis
     Dosage: 1200 MG TWICE A DAY
     Route: 065
  7. ATENOLOL [Concomitant]
     Active Substance: ATENOLOL
     Indication: Hypertension
     Dosage: 12.5 MG TWICE A DAY
     Route: 065
  8. METHYLCELLULOSES [Concomitant]
     Active Substance: METHYLCELLULOSES
     Indication: Constipation
     Dosage: 1000 MG TWICE A DAY
     Route: 065
  9. MAGNESIUM [Concomitant]
     Active Substance: MAGNESIUM
     Indication: Magnesium deficiency
     Dosage: 500 MG DAILY
     Route: 065
  10. CALTRATE WITH VITAMIN D [Concomitant]
     Active Substance: CALCIUM CARBONATE\CHOLECALCIFEROL
     Indication: Hypovitaminosis
     Dosage: 600-800 MG UNITS TWICE A DAY
     Route: 065
  11. MELATONIN [Concomitant]
     Active Substance: MELATONIN
     Indication: Insomnia
     Dosage: 5 MG AT BEDTIME
     Route: 065
  12. ALPHA LIPOIC ACID [Concomitant]
     Active Substance: .ALPHA.-LIPOIC ACID
     Indication: Cardiac disorder
     Dosage: 600 MG TWICE A DAY
     Route: 065
  13. TYLENOL EXTRA STRENGTH [Concomitant]
     Active Substance: ACETAMINOPHEN
     Indication: Pain
     Route: 065
  14. ATORVASTATIN CALCIUM [Concomitant]
     Active Substance: ATORVASTATIN CALCIUM
     Indication: Hypercholesterolaemia
     Dosage: 40 MG DAILY
     Route: 065
  15. FERRIC POLYSACCHARIDE COMPLEX [Concomitant]
     Active Substance: FERRIC POLYSACCHARIDE COMPLEX
     Indication: Anaemia
     Dosage: 150 MG DAILY
     Route: 065
  16. LUBRICANT EYEDROPS [Concomitant]
     Indication: Dry eye
     Dosage: ONE DROP DAILY
     Route: 047
  17. RESTASIS [Concomitant]
     Active Substance: CYCLOSPORINE
     Indication: Dry eye
     Dosage: 1 DROP TWICE A DAY
     Route: 047
  18. WOMEN MULTIVITAMIN [Concomitant]
     Indication: Hypovitaminosis
     Dosage: ONCE A DAY
     Route: 065
  19. CANNABIS SATIVA SUBSP. INDICA TOP [Concomitant]
     Active Substance: CANNABIS SATIVA SUBSP. INDICA TOP
     Indication: Pain
     Route: 065
  20. RITUXAN [Concomitant]
     Active Substance: RITUXIMAB
     Indication: Myasthenic syndrome
     Route: 042
  21. ZOFRAN [Concomitant]
     Active Substance: ONDANSETRON HYDROCHLORIDE
     Indication: Nausea
     Route: 065
  22. TYLENOL WITH CODEINE [Concomitant]
     Active Substance: ACETAMINOPHEN\CODEINE PHOSPHATE
     Indication: Pain
     Route: 065
  23. FAMOTIDINE [Concomitant]
     Active Substance: FAMOTIDINE
     Indication: Gastrooesophageal reflux disease
     Dosage: 40 MG EVERY MORNING
     Route: 065
  24. LISINOPRIL [Concomitant]
     Active Substance: LISINOPRIL
     Indication: Hypertension
     Dosage: 7.5 MG DAILY
     Route: 065
  25. XYZAL ALLERGY 24 HOURS [Concomitant]
     Indication: Seasonal allergy
     Dosage: 5 MG DAILY
     Route: 065
  26. AZELASTINE HYDROCHLORIDE\FLUTICASONE PROPIONATE [Concomitant]
     Active Substance: AZELASTINE HYDROCHLORIDE\FLUTICASONE PROPIONATE
     Indication: Seasonal allergy
     Dosage: 137-50 MICROGRAM TWICE A DAY
     Route: 045
  27. GABAPENTIN [Concomitant]
     Active Substance: GABAPENTIN
     Indication: Neuropathy peripheral
     Dosage: 2700 MG DAILY
     Route: 065

REACTIONS (4)
  - Loss of personal independence in daily activities [Not Recovered/Not Resolved]
  - Mobility decreased [Not Recovered/Not Resolved]
  - Immune system disorder [Not Recovered/Not Resolved]
  - Diarrhoea [Not Recovered/Not Resolved]

NARRATIVE: CASE EVENT DATE: 20240607
